FAERS Safety Report 5295146-2 (Version None)
Quarter: 2007Q2

REPORT INFORMATION
  Report Type: 
  Country: None (occurrence: None)
  Receive Date: 20070412
  Receipt Date: 20070406
  Transmission Date: 20071010
  Serious: Yes (Other)
  Sender: FDA-Public Use
  Company Number: ZA-ABBOTT-07P-143-0364340-00

PATIENT
  Age: 3 Year
  Sex: Male

DRUGS (1)
  1. EPILIM [Suspect]
     Indication: CONVULSION
     Route: 048

REACTIONS (3)
  - ABASIA [None]
  - CEREBRAL ATROPHY [None]
  - TREMOR [None]
